FAERS Safety Report 10102345 (Version 1)
Quarter: 2014Q2

REPORT INFORMATION
  Report Type: Report from Study
  Country: CA (occurrence: CA)
  Receive Date: 20140424
  Receipt Date: 20140424
  Transmission Date: 20141212
  Serious: Yes (Other)
  Sender: FDA-Public Use
  Company Number: CA-JNJFOC-20140415303

PATIENT
  Sex: Male
  Weight: 81.5 kg

DRUGS (2)
  1. REMICADE [Suspect]
     Indication: CROHN^S DISEASE
     Route: 042
     Dates: start: 2010
  2. METHOTREXATE [Concomitant]
     Route: 048

REACTIONS (2)
  - Herpes zoster [Recovered/Resolved]
  - Abscess [Recovered/Resolved]
